FAERS Safety Report 9608143 (Version 1)
Quarter: 2013Q4

REPORT INFORMATION
  Report Type: Spontaneous
  Country: US (occurrence: US)
  Receive Date: 20131009
  Receipt Date: 20131009
  Transmission Date: 20140711
  Serious: No
  Sender: FDA-Public Use
  Company Number: US-PFIZER INC-2013288255

PATIENT
  Age: 62 Year
  Sex: Female

DRUGS (2)
  1. ALPRAZOLAM [Suspect]
     Indication: BIPOLAR DISORDER
     Dosage: UNK, AS NEEDED
  2. ALPRAZOLAM [Suspect]
     Indication: ANXIETY

REACTIONS (1)
  - Drug effect incomplete [Unknown]
